FAERS Safety Report 25851494 (Version 1)
Quarter: 2025Q3

REPORT INFORMATION
  Report Type: Spontaneous
  Country: EU (occurrence: EU)
  Receive Date: 20250926
  Receipt Date: 20250926
  Transmission Date: 20251020
  Serious: Yes (Other)
  Sender: TOLMAR
  Company Number: EU-TOLMAR-TLM-1626-00

PATIENT
  Age: 28 Year
  Sex: Male

DRUGS (5)
  1. TESTOSTERONE [Suspect]
     Active Substance: TESTOSTERONE
     Indication: Product used for unknown indication
  2. TESTOSTERONE ENANTHATE [Suspect]
     Active Substance: TESTOSTERONE ENANTHATE
     Indication: Product used for unknown indication
  3. TRENBOLONE ACETATE [Suspect]
     Active Substance: TRENBOLONE ACETATE
     Indication: Product used for unknown indication
  4. TELMISARTAN [Concomitant]
     Active Substance: TELMISARTAN
     Indication: Blood pressure increased
  5. SOMATROPIN [Concomitant]
     Active Substance: SOMATROPIN
     Indication: Product used for unknown indication

REACTIONS (12)
  - Drug abuse [Unknown]
  - Fatigue [Unknown]
  - Blood testosterone increased [Unknown]
  - Night sweats [Unknown]
  - Gynaecomastia [Unknown]
  - Blood luteinising hormone decreased [Unknown]
  - Blood follicle stimulating hormone decreased [Unknown]
  - Breast tenderness [Unknown]
  - Haematocrit increased [Unknown]
  - Dyslipidaemia [Unknown]
  - Blood pressure increased [Unknown]
  - Transaminases increased [Unknown]
